FAERS Safety Report 7426996-1 (Version None)
Quarter: 2011Q2

REPORT INFORMATION
  Report Type: 
  Country: None (occurrence: None)
  Receive Date: 20110420
  Receipt Date: 20110321
  Transmission Date: 20111010
  Serious: Yes (Other)
  Sender: FDA-Public Use
  Company Number: US-BAYER-2010-001609

PATIENT
  Age: 28 Year
  Sex: Female
  Weight: 49.887 kg

DRUGS (3)
  1. YAZ [Suspect]
     Indication: ACNE
     Dosage: UNK
     Dates: start: 20030101
  2. ADVIL LIQUI-GELS [Concomitant]
     Indication: HEADACHE
  3. YASMIN [Suspect]
     Indication: ACNE
     Dosage: UNK
     Dates: start: 20030101

REACTIONS (5)
  - BILIARY DYSKINESIA [None]
  - CHOLECYSTECTOMY [None]
  - NAUSEA [None]
  - VOMITING [None]
  - ABDOMINAL PAIN [None]
